FAERS Safety Report 8537140-1 (Version None)
Quarter: 2012Q3

REPORT INFORMATION
  Report Type: 
  Country: None (occurrence: None)
  Receive Date: 20120725
  Receipt Date: 20120719
  Transmission Date: 20120928
  Serious: Yes (Other)
  Sender: FDA-Public Use
  Company Number: US-TEVA-349687USA

PATIENT
  Age: 39 Year
  Sex: Female

DRUGS (1)
  1. COPAXONE [Suspect]
     Indication: MULTIPLE SCLEROSIS

REACTIONS (4)
  - MIGRAINE [None]
  - ANEURYSM [None]
  - MULTIPLE SCLEROSIS RELAPSE [None]
  - DRUG INEFFECTIVE [None]
